FAERS Safety Report 23591293 (Version 1)
Quarter: 2024Q1

REPORT INFORMATION
  Report Type: Spontaneous
  Country: GB (occurrence: None)
  Receive Date: 20240304
  Receipt Date: 20240304
  Transmission Date: 20240410
  Serious: Yes (Other)
  Sender: FDA-Public Use
  Company Number: 2024A046034

PATIENT
  Age: 87 Year
  Sex: Female
  Weight: 47 kg

DRUGS (11)
  1. DAPAGLIFLOZIN [Suspect]
     Active Substance: DAPAGLIFLOZIN
     Indication: Oedema
     Dates: start: 20240205, end: 20240207
  2. ADCAL [Concomitant]
     Dates: start: 20200511
  3. ALENDRONIC ACID [Concomitant]
     Active Substance: ALENDRONIC ACID
     Dates: start: 20200511
  4. APIXABAN [Concomitant]
     Active Substance: APIXABAN
     Dates: start: 20160113
  5. ATORVASTATIN [Concomitant]
     Active Substance: ATORVASTATIN
     Dates: start: 20160113
  6. BISOPROLOL [Concomitant]
     Active Substance: BISOPROLOL\BISOPROLOL FUMARATE
     Dates: start: 20170302
  7. FUROSEMIDE [Concomitant]
     Active Substance: FUROSEMIDE
     Dates: start: 20221221
  8. LEVOTHYROXINE [Concomitant]
     Active Substance: LEVOTHYROXINE\LEVOTHYROXINE SODIUM
     Dates: start: 20160113
  9. OESTRIOL [Concomitant]
     Dates: start: 20220106
  10. ESTRADIOL [Concomitant]
     Active Substance: ESTRADIOL
     Dates: start: 20210412
  11. ACETAMINOPHEN [Concomitant]
     Active Substance: ACETAMINOPHEN
     Dates: start: 20200511

REACTIONS (1)
  - Vasculitis [Recovering/Resolving]

NARRATIVE: CASE EVENT DATE: 20240207
